FAERS Safety Report 16688112 (Version 2)
Quarter: 2019Q3

REPORT INFORMATION
  Report Type: Report from Study
  Country: None (occurrence: TR)
  Receive Date: 20190809
  Receipt Date: 20190825
  Transmission Date: 20191004
  Serious: Yes (Hospitalization)
  Sender: FDA-Public Use
  Company Number: TR-ABBVIE-19K-161-2881032-00

PATIENT
  Sex: Female
  Weight: 125 kg

DRUGS (5)
  1. NEURONTIN [Concomitant]
     Active Substance: GABAPENTIN
     Indication: NEURALGIA
     Route: 048
  2. DUODOPA [Suspect]
     Active Substance: CARBIDOPA\LEVODOPA
     Indication: PARKINSON^S DISEASE
     Dosage: MORNING DOSE (ML): 3.00 CONTINUOUS DOSE (ML): 2.80 EXTRA DOSE (ML): 1.00
     Route: 050
     Dates: start: 20170724, end: 20190806
  3. DUODOPA [Suspect]
     Active Substance: CARBIDOPA\LEVODOPA
     Dosage: MORNING DOSE (ML): 3.00  CONTINUOUS DOSE (ML): 3.40 EXTRA DOSE (ML): 1.00
     Route: 050
     Dates: start: 20190806
  4. GYREX [Concomitant]
     Indication: PARKINSON^S DISEASE
     Dosage: 2X50 MG
     Route: 048
  5. VASOCARD [Concomitant]
     Active Substance: AMLODIPINE BESYLATE
     Indication: PROPHYLAXIS
     Route: 048

REACTIONS (2)
  - Abdominal pain upper [Unknown]
  - Tremor [Recovered/Resolved]

NARRATIVE: CASE EVENT DATE: 2019
